FAERS Safety Report 10203135 (Version 2)
Quarter: 2014Q2

REPORT INFORMATION
  Report Type: Report from Study
  Country: DE (occurrence: DE)
  Receive Date: 20140529
  Receipt Date: 20140530
  Transmission Date: 20141212
  Serious: Yes (Other)
  Sender: FDA-Public Use
  Company Number: DE-ROCHE-1407265

PATIENT
  Age: 51 Year
  Sex: Female
  Weight: 60 kg

DRUGS (5)
  1. BEVACIZUMAB [Suspect]
     Indication: COLORECTAL CANCER METASTATIC
     Dosage: ROUTE AND DOSE AS PER PROTOCOL
     Route: 042
     Dates: start: 20120323
  2. IRINOTECAN [Suspect]
     Indication: COLORECTAL CANCER METASTATIC
     Route: 042
     Dates: start: 20120323
  3. OXALIPLATIN [Suspect]
     Indication: COLORECTAL CANCER METASTATIC
     Dosage: ROUTE AND DOSE AS PER PROTOCOL
     Route: 042
     Dates: start: 20120323
  4. 5-FU [Suspect]
     Indication: COLORECTAL CANCER METASTATIC
     Route: 042
     Dates: start: 20120323
  5. LEUCOVORIN [Suspect]
     Indication: COLORECTAL CANCER METASTATIC
     Dosage: ROUTE AND DOSE AS PER PROTOCOL
     Route: 042
     Dates: start: 20120323

REACTIONS (2)
  - Mucosal inflammation [Recovered/Resolved]
  - Radiation oesophagitis [Recovered/Resolved]
